FAERS Safety Report 7571983-6 (Version None)
Quarter: 2011Q2

REPORT INFORMATION
  Report Type: 
  Country: None (occurrence: None)
  Receive Date: 20110620
  Receipt Date: 20110610
  Transmission Date: 20111010
  Serious: Yes (Hospitalization, Other)
  Sender: FDA-Public Use
  Company Number: 201110702

PATIENT
  Sex: Female

DRUGS (3)
  1. CLONIDINE [Concomitant]
  2. DILAUDID [Concomitant]
  3. LIORESAL [Suspect]
     Indication: MUSCLE SPASTICITY
     Dosage: DAILY, INTRATHECAL
     Route: 037

REACTIONS (3)
  - CATHETER SITE SWELLING [None]
  - NO THERAPEUTIC RESPONSE [None]
  - DEVICE BREAKAGE [None]
